FAERS Safety Report 7776080-2 (Version None)
Quarter: 2011Q3

REPORT INFORMATION
  Report Type: 
  Country: None (occurrence: None)
  Receive Date: 20110925
  Receipt Date: 20110915
  Transmission Date: 20111222
  Serious: Yes (Hospitalization, Other)
  Sender: FDA-Public Use
  Company Number: JP-AMGEN-JPNCT2011008918

PATIENT
  Age: 61 Year
  Sex: Female
  Weight: 76 kg

DRUGS (19)
  1. PANITUMUMAB [Suspect]
     Indication: COLORECTAL CANCER
     Dosage: 6 MG/KG, Q2WK
     Route: 041
     Dates: start: 20100713, end: 20101018
  2. LEUCOVORIN CALCIUM [Concomitant]
     Indication: COLORECTAL CANCER
     Route: 041
     Dates: start: 20100713
  3. DECADRON [Concomitant]
     Dosage: UNK
     Route: 042
  4. IRINOTECAN HCL [Concomitant]
     Indication: COLORECTAL CANCER
     Route: 041
     Dates: start: 20100713
  5. MICARDIS [Concomitant]
     Dosage: UNK
     Route: 048
  6. FAMOTIDINE [Concomitant]
     Dosage: UNK
     Route: 042
  7. URSO 250 [Concomitant]
     Dosage: UNK
     Route: 048
  8. PANITUMUMAB [Suspect]
     Dosage: 4.8 MG/KG, Q2WK
     Route: 041
     Dates: start: 20101115, end: 20101115
  9. ERBITUX [Concomitant]
     Indication: COLORECTAL CANCER
     Dosage: UNK
     Route: 041
     Dates: start: 20091101, end: 20100601
  10. PROTECADIN [Concomitant]
     Dosage: UNK
     Route: 048
  11. ANTIHISTAMINES [Concomitant]
     Indication: PROPHYLAXIS
     Dosage: UNK
  12. CORTICOSTEROIDS [Concomitant]
     Indication: PROPHYLAXIS
     Dosage: UNK
  13. RESTAMIN [Concomitant]
     Dosage: UNK
     Route: 048
  14. ATARAX [Concomitant]
     Dosage: UNK
     Route: 048
  15. BEZATOL [Concomitant]
     Dosage: UNK
     Route: 048
  16. NEUROVITAN [Concomitant]
     Dosage: UNK
     Route: 048
  17. FLUOROURACIL [Concomitant]
     Indication: COLORECTAL CANCER
     Route: 041
     Dates: start: 20100713
  18. PURSENNID [Concomitant]
     Dosage: UNK
     Route: 048
  19. OLOPATADINE HCL [Concomitant]
     Dosage: UNK
     Route: 048

REACTIONS (7)
  - HYPOKALAEMIA [None]
  - HYPOCALCAEMIA [None]
  - EYE DISCHARGE [None]
  - DIZZINESS [None]
  - INFUSION RELATED REACTION [None]
  - ANAESTHESIA DOLOROSA [None]
  - PARONYCHIA [None]
